FAERS Safety Report 11110224 (Version 1)
Quarter: 2015Q2

REPORT INFORMATION
  Report Type: Spontaneous
  Country: US (occurrence: US)
  Receive Date: 20150513
  Receipt Date: 20150513
  Transmission Date: 20150821
  Serious: Yes (Hospitalization, Other)
  Sender: FDA-Public Use
  Company Number: US-BAYER-2015-190959

PATIENT
  Age: 56 Year
  Sex: Female

DRUGS (1)
  1. AVELOX [Suspect]
     Active Substance: MOXIFLOXACIN HYDROCHLORIDE
     Indication: PNEUMONIA
     Dosage: 400 MG, QD
     Route: 048
     Dates: start: 20150126, end: 20150130

REACTIONS (7)
  - Multiple sclerosis [None]
  - Serum sickness [Recovering/Resolving]
  - Pharyngeal oedema [None]
  - Throat tightness [None]
  - Generalised oedema [None]
  - Immunodeficiency [None]
  - Swelling face [None]

NARRATIVE: CASE EVENT DATE: 20150129
